FAERS Safety Report 5489798-1 (Version None)
Quarter: 2007Q4

REPORT INFORMATION
  Report Type: 
  Country: None (occurrence: None)
  Receive Date: 20071018
  Receipt Date: 20071006
  Transmission Date: 20080405
  Serious: Yes (Other)
  Sender: FDA-Public Use
  Company Number: US-PFIZER INC-2007084758

PATIENT
  Sex: Female
  Weight: 90.909 kg

DRUGS (1)
  1. CHANTIX [Suspect]
     Indication: SMOKING CESSATION THERAPY
     Route: 048
     Dates: start: 20070928, end: 20071005

REACTIONS (9)
  - DIARRHOEA [None]
  - FEELING JITTERY [None]
  - HALLUCINATION [None]
  - ILLUSION [None]
  - MALAISE [None]
  - NAUSEA [None]
  - NERVOUSNESS [None]
  - PARANOIA [None]
  - VOMITING [None]
